FAERS Safety Report 25126063 (Version 1)
Quarter: 2025Q1

REPORT INFORMATION
  Report Type: Spontaneous
  Country: AU (occurrence: AU)
  Receive Date: 20250326
  Receipt Date: 20250326
  Transmission Date: 20250409
  Serious: Yes (Death, Other)
  Sender: ORGANON
  Company Number: None

PATIENT
  Age: 47 Year
  Sex: Female

DRUGS (8)
  1. MIRTAZAPINE [Suspect]
     Active Substance: MIRTAZAPINE
     Dates: start: 2021
  2. DIAZEPAM [Suspect]
     Active Substance: DIAZEPAM
     Dates: start: 2021
  3. DULOXETINE HYDROCHLORIDE [Suspect]
     Active Substance: DULOXETINE HYDROCHLORIDE
     Dates: start: 2021
  4. OXAZEPAM [Suspect]
     Active Substance: OXAZEPAM
     Dates: start: 2021
  5. OXYCODONE [Suspect]
     Active Substance: OXYCODONE
     Dates: start: 2021
  6. TAPENTADOL [Suspect]
     Active Substance: TAPENTADOL
     Dates: start: 2021
  7. TEMAZEPAM [Suspect]
     Active Substance: TEMAZEPAM
     Dates: start: 2021
  8. VENLAFAXINE HYDROCHLORIDE [Suspect]
     Active Substance: VENLAFAXINE HYDROCHLORIDE
     Dates: start: 2021

REACTIONS (3)
  - Toxicity to various agents [Fatal]
  - Headache [Unknown]
  - Nausea [Unknown]

NARRATIVE: CASE EVENT DATE: 20210101
